FAERS Safety Report 5360609-8 (Version None)
Quarter: 2007Q2

REPORT INFORMATION
  Report Type: 
  Country: None (occurrence: None)
  Receive Date: 20070618
  Receipt Date: 20070606
  Transmission Date: 20071010
  Serious: Yes (Life-Threatening)
  Sender: FDA-Public Use
  Company Number: PHBS2007ES09398

PATIENT
  Age: 76 Year
  Sex: Male

DRUGS (5)
  1. IDALPREM (NCH) [Suspect]
     Dosage: 1 MG/D
     Route: 048
     Dates: start: 20030422
  2. NEUPRO [Suspect]
     Indication: PARKINSON'S DISEASE
     Dosage: 2 MG/D
     Route: 062
     Dates: start: 20070326, end: 20070402
  3. COMTAN [Suspect]
     Indication: PARKINSON'S DISEASE
     Dosage: 800 MG/D
     Route: 048
     Dates: start: 20020724
  4. SINEMET [Suspect]
     Indication: PARKINSON'S DISEASE
     Dosage: 25/250 MG X4/DAY
     Route: 048
     Dates: start: 20000530
  5. SERTRALINE [Suspect]
     Dosage: 50 MG/DAY
     Route: 048
     Dates: start: 20000530

REACTIONS (2)
  - DRUG INTERACTION [None]
  - HALLUCINATION [None]
